FAERS Safety Report 9117193 (Version 1)
Quarter: 2013Q1

REPORT INFORMATION
  Report Type: Spontaneous
  Country: US (occurrence: US)
  Receive Date: 20130208
  Receipt Date: 20130208
  Transmission Date: 20140127
  Serious: Yes (Hospitalization, Disabling, Other)
  Sender: FDA-Public Use
  Company Number: US-ELI_LILLY_AND_COMPANY-US201301009557

PATIENT
  Sex: Female

DRUGS (6)
  1. HUMULIN REGULAR [Suspect]
     Indication: DIABETES MELLITUS
     Dosage: UNK UNK, PRN
  2. HUMULIN REGULAR [Suspect]
     Indication: DIABETES MELLITUS
     Dosage: UNK, UNKNOWN
  3. HUMULIN NPH [Suspect]
     Indication: DIABETES MELLITUS
     Dosage: UNK, UNKNOWN
  4. HUMULIN 30% REGULAR, 70% NPH [Suspect]
     Indication: DIABETES MELLITUS
     Dosage: UNK, UNKNOWN
  5. HUMALOG LISPRO [Suspect]
     Indication: DIABETES MELLITUS
     Dosage: UNK, UNKNOWN
  6. ILETIN [Suspect]
     Indication: DIABETES MELLITUS

REACTIONS (12)
  - Cerebrovascular accident [Unknown]
  - Abasia [Recovering/Resolving]
  - Cerebrovascular accident [Unknown]
  - Visual impairment [Unknown]
  - Blood glucose fluctuation [Unknown]
  - Stress [Unknown]
  - Drug ineffective [Unknown]
  - Drug ineffective [Unknown]
  - Drug ineffective [Unknown]
  - Drug ineffective [Unknown]
  - Drug ineffective [Unknown]
  - Drug ineffective [Unknown]
